FAERS Safety Report 9278163 (Version 3)
Quarter: 2013Q2

REPORT INFORMATION
  Report Type: Spontaneous
  Country: FR (occurrence: FR)
  Receive Date: 20130508
  Receipt Date: 20130614
  Transmission Date: 20140414
  Serious: Yes (Other)
  Sender: FDA-Public Use
  Company Number: FR-BRISTOL-MYERS SQUIBB COMPANY-18849075

PATIENT
  Age: 46 Year
  Sex: Female

DRUGS (2)
  1. ABILIFY [Suspect]
     Indication: SCHIZOPHRENIA
     Dosage: FROM JAN2006 TO TO NOV2007,10 MG,ORAL?FROM NOV 2007 DOSAGE INCREASED TO 15 MG
     Route: 048
     Dates: start: 200601
  2. HALDOL [Suspect]
     Indication: SCHIZOPHRENIA
     Dosage: HALOPERIDOL 15 MG SINCE THE END OF 2004 TO JAN-2006?HALOPERIDOL 1 MG BETWEEN JAN-2006 AND NOV-2007
     Dates: start: 2004, end: 200711

REACTIONS (1)
  - Retinitis pigmentosa [Not Recovered/Not Resolved]
